FAERS Safety Report 9156594 (Version 1)
Quarter: 2013Q1

REPORT INFORMATION
  Report Type: Spontaneous
  Country: US (occurrence: None)
  Receive Date: 20130307
  Receipt Date: 20130307
  Transmission Date: 20140127
  Serious: No
  Sender: FDA-Public Use
  Company Number: None

PATIENT
  Sex: 0

DRUGS (1)
  1. ALBUTEROL [Suspect]

REACTIONS (4)
  - Gait disturbance [None]
  - Cardiac disorder [None]
  - Renal disorder [None]
  - Product quality issue [None]
